FAERS Safety Report 9787840 (Version 1)
Quarter: 2013Q4

REPORT INFORMATION
  Report Type: Spontaneous
  Country: US (occurrence: US)
  Receive Date: 20131230
  Receipt Date: 20131230
  Transmission Date: 20140711
  Serious: No
  Sender: FDA-Public Use
  Company Number: US-PFIZER INC-2013371798

PATIENT
  Age: 29 Year
  Sex: Female
  Weight: 69.39 kg

DRUGS (3)
  1. LYRICA [Suspect]
     Indication: NEUROPATHY PERIPHERAL
     Dosage: 75 MG, 2X/DAY
     Route: 048
  2. VENLAFAXINE [Concomitant]
     Indication: DEPRESSION
     Dosage: 150 MG, 1X/DAY
  3. LORTAB [Concomitant]
     Indication: PAIN
     Dosage: 5 MG, UNK

REACTIONS (1)
  - Pain [Unknown]
